FAERS Safety Report 4603841-0 (Version None)
Quarter: 2005Q1

REPORT INFORMATION
  Report Type: 
  Country: None (occurrence: None)
  Receive Date: 20050308
  Receipt Date: 20050223
  Transmission Date: 20050727
  Serious: Yes (Other)
  Sender: FDA-Public Use
  Company Number: 2005008465

PATIENT
  Sex: Female

DRUGS (2)
  1. CELEBREX [Suspect]
     Indication: ILL-DEFINED DISORDER
     Dosage: 400 MG (200 MG, 2 IN 1 D)
  2. ROFECOXIB [Suspect]
     Indication: ILL-DEFINED DISORDER
     Dates: end: 20041101

REACTIONS (3)
  - ARTHRALGIA [None]
  - ARTHRITIS [None]
  - PAIN IN EXTREMITY [None]
